FAERS Safety Report 8042716-4 (Version None)
Quarter: 2012Q1

REPORT INFORMATION
  Report Type: 
  Country: None (occurrence: None)
  Receive Date: 20120112
  Receipt Date: 20120105
  Transmission Date: 20120608
  Serious: Yes (Hospitalization)
  Sender: FDA-Public Use
  Company Number: US-ACTELION-A-US2008-21897

PATIENT

DRUGS (4)
  1. OXYGEN [Concomitant]
  2. TRACLEER [Suspect]
     Indication: PULMONARY ARTERIAL HYPERTENSION
     Dosage: 125 MG, BID
     Route: 048
     Dates: start: 20080904
  3. CALCIUM CHANNEL BLOCKERS [Concomitant]
  4. REVATIO [Concomitant]

REACTIONS (8)
  - INFLUENZA [None]
  - HOT FLUSH [None]
  - PNEUMONIA [None]
  - ONYCHOCLASIS [None]
  - MYALGIA [None]
  - ARTHRALGIA [None]
  - HEADACHE [None]
  - FATIGUE [None]
